FAERS Safety Report 5933445-9 (Version None)
Quarter: 2008Q4

REPORT INFORMATION
  Report Type: 
  Country: None (occurrence: None)
  Receive Date: 20081022
  Receipt Date: 20061206
  Transmission Date: 20090506
  Serious: Yes (Other)
  Sender: FDA-Public Use
  Company Number: US-WYE-H06416808

PATIENT

DRUGS (2)
  1. ROBITUSSIN COUGH LONG ACTING (DEXTROMETHORPHAN HYDROBROMIDE, SYRUP) [Suspect]
     Indication: DRUG ABUSE
  2. ALCOHOL (ETHANOL, ) [Suspect]

REACTIONS (2)
  - DRUG ABUSE [None]
  - DYSPNOEA [None]
